FAERS Safety Report 9851160 (Version 1)
Quarter: 2014Q1

REPORT INFORMATION
  Report Type: Spontaneous
  Country: US (occurrence: US)
  Receive Date: 20140128
  Receipt Date: 20140128
  Transmission Date: 20141002
  Serious: No
  Sender: FDA-Public Use
  Company Number: US-SANOFI-AVENTIS-2013SA041752

PATIENT
  Age: 79 Year
  Sex: Female
  Weight: 103.87 kg

DRUGS (10)
  1. LASIX [Suspect]
     Indication: HYPERTENSION
     Route: 065
     Dates: start: 2012, end: 2012
  2. HYDROCHLOROTHIAZIDE [Suspect]
     Indication: HYPERTENSION
     Dosage: STOP DATE : 2012
     Route: 065
     Dates: start: 201210
  3. TIMOLOL [Concomitant]
     Indication: GLAUCOMA
  4. ALPHAGAN [Concomitant]
     Indication: GLAUCOMA
  5. ALLOPURINOL [Concomitant]
  6. COUMADIN [Concomitant]
  7. GLUCOPHAGE [Concomitant]
  8. KLOR-CON [Concomitant]
  9. ZESTRIL [Concomitant]
  10. LIPITOR [Concomitant]
     Indication: HYPERTENSION
     Route: 048
     Dates: start: 2001

REACTIONS (4)
  - Oedema peripheral [Unknown]
  - Swelling [Unknown]
  - Fluid retention [Unknown]
  - Unevaluable event [Unknown]
